FAERS Safety Report 5754113-2 (Version None)
Quarter: 2008Q2

REPORT INFORMATION
  Report Type: 
  Country: None (occurrence: None)
  Receive Date: 20080527
  Receipt Date: 20080527
  Transmission Date: 20081010
  Serious: Yes (Congenital Anomaly)
  Sender: FDA-Public Use
  Company Number: None

PATIENT
  Sex: Male
  Weight: 1 kg

DRUGS (1)
  1. PROZAC [Suspect]
     Indication: DEPRESSION
     Dosage: 1 QD PO
     Route: 048
     Dates: start: 20020101, end: 20060901

REACTIONS (5)
  - CONGENITAL PULMONARY HYPERTENSION [None]
  - CONGENITAL RENAL DISORDER [None]
  - MATERNAL DRUGS AFFECTING FOETUS [None]
  - MULTIPLE CARDIAC DEFECTS [None]
  - PREGNANCY [None]
